FAERS Safety Report 8303144-7 (Version None)
Quarter: 2012Q2

REPORT INFORMATION
  Report Type: 
  Country: None (occurrence: None)
  Receive Date: 20120423
  Receipt Date: 20120412
  Transmission Date: 20120825
  Serious: Yes (Other)
  Sender: FDA-Public Use
  Company Number: US-BIOGENIDEC-2009BI039960

PATIENT
  Sex: Female
  Weight: 63 kg

DRUGS (2)
  1. AVONEX [Suspect]
     Indication: MULTIPLE SCLEROSIS
     Route: 030
     Dates: start: 20090313, end: 20100101
  2. AVONEX [Suspect]
     Route: 030
     Dates: start: 20100904, end: 20120317

REACTIONS (5)
  - BONE NEOPLASM MALIGNANT [None]
  - SARCOMA [None]
  - BENIGN BREAST NEOPLASM [None]
  - BREAST CYST [None]
  - DRUG INEFFECTIVE [None]
